FAERS Safety Report 8066182-8 (Version None)
Quarter: 2012Q1

REPORT INFORMATION
  Report Type: 
  Country: None (occurrence: None)
  Receive Date: 20120124
  Receipt Date: 20120109
  Transmission Date: 20120608
  Serious: Yes (Other)
  Sender: FDA-Public Use
  Company Number: IT-ROCHE-1029953

PATIENT

DRUGS (8)
  1. METHOTREXATE [Suspect]
     Indication: BURKITT'S LYMPHOMA
  2. ETOPOSIDE [Suspect]
     Indication: BURKITT'S LYMPHOMA
  3. CYTARABINE [Suspect]
     Indication: BURKITT'S LYMPHOMA
  4. VINCRISTINE [Suspect]
     Indication: BURKITT'S LYMPHOMA
  5. CYCLOPHOSPHAMIDE [Suspect]
     Indication: BURKITT'S LYMPHOMA
  6. MABTHERA [Suspect]
     Indication: BURKITT'S LYMPHOMA
  7. DOXORUBICIN HCL [Suspect]
     Indication: BURKITT'S LYMPHOMA
  8. IFOSFAMIDE [Suspect]
     Indication: BURKITT'S LYMPHOMA

REACTIONS (12)
  - GASTROENTERITIS CLOSTRIDIAL [None]
  - HEPATITIS CHOLESTATIC [None]
  - INFECTION [None]
  - HERPES ZOSTER [None]
  - GASTROINTESTINAL TOXICITY [None]
  - SUPRAVENTRICULAR TACHYARRHYTHMIA [None]
  - ARRHYTHMIA SUPRAVENTRICULAR [None]
  - TRANSAMINASES INCREASED [None]
  - SYNCOPE [None]
  - BONE MARROW FAILURE [None]
  - FEBRILE NEUTROPENIA [None]
  - PERIPHERAL SENSORIMOTOR NEUROPATHY [None]
